FAERS Safety Report 12823321 (Version 2)
Quarter: 2016Q4

REPORT INFORMATION
  Report Type: Spontaneous
  Country: US (occurrence: US)
  Receive Date: 20161007
  Receipt Date: 20161017
  Transmission Date: 20170207
  Serious: No
  Sender: FDA-Public Use
  Company Number: US-TEVA-699730USA

PATIENT
  Age: 45 Year
  Sex: Male

DRUGS (1)
  1. COPAXONE [Suspect]
     Active Substance: GLATIRAMER ACETATE
     Dosage: FORM STRENGTH NOT PROVIDED
     Route: 065

REACTIONS (4)
  - Adverse drug reaction [Unknown]
  - Injection site reaction [Unknown]
  - Hypertension [Unknown]
  - Anxiety [Unknown]
